FAERS Safety Report 4802471-5 (Version None)
Quarter: 2005Q4

REPORT INFORMATION
  Report Type: 
  Country: None (occurrence: None)
  Receive Date: 20051011
  Receipt Date: 20050721
  Transmission Date: 20060501
  Serious: Yes (Life-Threatening, Hospitalization)
  Sender: FDA-Public Use
  Company Number: 2005011043

PATIENT
  Age: 10 Year
  Sex: Female
  Weight: 27 kg

DRUGS (4)
  1. SILDENAFIL CITRATE [Suspect]
     Indication: PULMONARY HYPERTENSION
     Dosage: 120 MG (40 MG, 3 IN 1 D), ORAL
     Route: 048
     Dates: start: 20040226, end: 20050322
  2. SILDENAFIL CITRATE [Suspect]
     Indication: PULMONARY HYPERTENSION
     Dosage: 120 MG (40 MG, 3 IN 1 D), ORAL
     Route: 048
     Dates: start: 20040226, end: 20050322
  3. NIFEDIPINE [Concomitant]
  4. ADVAIR DISKUS (FLUTICASONE PROPIONATE, SALMETEROL XINAFOATE) [Concomitant]

REACTIONS (8)
  - COUGH [None]
  - DYSPNOEA EXACERBATED [None]
  - EXERCISE TOLERANCE DECREASED [None]
  - HYPOXIA [None]
  - LUNG CONSOLIDATION [None]
  - MUSCLE FATIGUE [None]
  - PLEURAL EFFUSION [None]
  - UPPER RESPIRATORY TRACT INFECTION [None]
